FAERS Safety Report 25283420 (Version 1)
Quarter: 2025Q2

REPORT INFORMATION
  Report Type: Spontaneous
  Country: BR (occurrence: BR)
  Receive Date: 20250508
  Receipt Date: 20250508
  Transmission Date: 20250716
  Serious: Yes (Hospitalization)
  Sender: AMERICAN REGENT
  Company Number: BR-AMERICAN REGENT INC-2025001872

PATIENT
  Age: 34 Year
  Sex: Female
  Weight: 84.5 kg

DRUGS (1)
  1. FERINJECT [Suspect]
     Active Substance: FERRIC CARBOXYMALTOSE
     Indication: Iron deficiency anaemia
     Route: 042
     Dates: start: 20250306, end: 20250306

REACTIONS (4)
  - Haematemesis [Unknown]
  - Vertigo [Unknown]
  - Infusion related reaction [Recovered/Resolved]
  - Blood pressure increased [Unknown]

NARRATIVE: CASE EVENT DATE: 20250306
